FAERS Safety Report 25777898 (Version 2)
Quarter: 2025Q3

REPORT INFORMATION
  Report Type: Spontaneous
  Country: US (occurrence: US)
  Receive Date: 20250909
  Receipt Date: 20250923
  Transmission Date: 20251021
  Serious: Yes (Other)
  Sender: TEVA
  Company Number: US-TEVA-VS-3368959

PATIENT
  Age: 1 Year
  Sex: Male

DRUGS (6)
  1. ISOTRETINOIN [Suspect]
     Active Substance: ISOTRETINOIN
     Indication: Atypical teratoid/rhabdoid tumour of CNS
     Route: 065
  2. CYCLOPHOSPHAMIDE [Suspect]
     Active Substance: CYCLOPHOSPHAMIDE
     Indication: Atypical teratoid/rhabdoid tumour of CNS
     Route: 065
  3. ETOPOSIDE [Suspect]
     Active Substance: ETOPOSIDE
     Indication: Atypical teratoid/rhabdoid tumour of CNS
     Route: 065
  4. TAZEMETOSTAT [Suspect]
     Active Substance: TAZEMETOSTAT
     Indication: Atypical teratoid/rhabdoid tumour of CNS
     Dosage: IN SUSPENSION FORM PER GASTROSTOMY-TUBE
     Route: 065
  5. CELECOXIB [Suspect]
     Active Substance: CELECOXIB
     Indication: Atypical teratoid/rhabdoid tumour of CNS
     Route: 065
  6. TOPOTECAN [Suspect]
     Active Substance: TOPOTECAN HYDROCHLORIDE
     Indication: Atypical teratoid/rhabdoid tumour of CNS
     Dosage: AS A PART OF MAINTENANCE METRONOMIC THERAPY; RECEIVED FOR 15 WEEKS BEFORE LACK OF EFFICACY WAS NO...
     Route: 065

REACTIONS (3)
  - Drug ineffective [Unknown]
  - Toxicity to various agents [Recovered/Resolved]
  - Blood bromide increased [Recovered/Resolved]
